FAERS Safety Report 25456327 (Version 1)
Quarter: 2025Q2

REPORT INFORMATION
  Report Type: Spontaneous
  Country: TW (occurrence: TW)
  Receive Date: 20250619
  Receipt Date: 20250619
  Transmission Date: 20250717
  Serious: Yes (Other)
  Sender: AMGEN
  Company Number: TW-AMGEN-TWNSP2025118205

PATIENT

DRUGS (1)
  1. BEVACIZUMAB [Suspect]
     Active Substance: BEVACIZUMAB
     Indication: Hepatocellular carcinoma
     Route: 065

REACTIONS (6)
  - Hepatocellular carcinoma [Unknown]
  - Portal vein thrombosis [Unknown]
  - Metastasis [Unknown]
  - Tumour invasion [Unknown]
  - Drug effective for unapproved indication [Unknown]
  - Off label use [Unknown]
